FAERS Safety Report 16438939 (Version 1)
Quarter: 2019Q2

REPORT INFORMATION
  Report Type: Spontaneous
  Country: IL (occurrence: IL)
  Receive Date: 20190617
  Receipt Date: 20190617
  Transmission Date: 20190711
  Serious: Yes (Hospitalization)
  Sender: FDA-Public Use
  Company Number: IL-BRISTOL-MYERS SQUIBB COMPANY-BMS-2019-056588

PATIENT
  Age: 69 Year
  Sex: Male

DRUGS (2)
  1. NIVOLUMAB [Suspect]
     Active Substance: NIVOLUMAB
     Indication: RENAL CELL CARCINOMA
     Dosage: UNK UNK, Q3WK
     Route: 042
  2. IPILIMUMAB [Suspect]
     Active Substance: IPILIMUMAB
     Indication: RENAL CELL CARCINOMA
     Dosage: UNK, Q3WK
     Route: 042

REACTIONS (2)
  - Cystitis [Unknown]
  - Haematuria [Unknown]
